FAERS Safety Report 13054198 (Version 1)
Quarter: 2016Q4

REPORT INFORMATION
  Report Type: Spontaneous
  Country: US (occurrence: US)
  Receive Date: 20161222
  Receipt Date: 20161222
  Transmission Date: 20170207
  Serious: Yes (Other)
  Sender: FDA-Public Use
  Company Number: US-ALLERGAN-1681585US

PATIENT
  Age: 14 Year
  Sex: Female

DRUGS (1)
  1. LEVOTHYROXINE SODIUM UNK [Suspect]
     Active Substance: LEVOTHYROXINE SODIUM
     Indication: HYPERPARATHYROIDISM SECONDARY
     Route: 065

REACTIONS (3)
  - Overdose [Unknown]
  - Off label use [Unknown]
  - Hyperthyroidism [Unknown]
